FAERS Safety Report 10143557 (Version 1)
Quarter: 2014Q2

REPORT INFORMATION
  Report Type: Spontaneous
  Country: US (occurrence: None)
  Receive Date: 20140429
  Receipt Date: 20140429
  Transmission Date: 20141212
  Serious: Yes (Hospitalization)
  Sender: FDA-Public Use
  Company Number: None

PATIENT
  Age: 29 Year
  Sex: Male
  Weight: 83.92 kg

DRUGS (2)
  1. CITALOPRAM [Suspect]
     Indication: DEPRESSION
     Dosage: 1 TABLET QD ORAL
     Route: 048
     Dates: start: 20140423, end: 20140426
  2. RIP ITT ENERGY DRINK [Concomitant]

REACTIONS (1)
  - Serotonin syndrome [None]
